FAERS Safety Report 10228066 (Version 1)
Quarter: 2014Q2

REPORT INFORMATION
  Report Type: Spontaneous
  Country: RS (occurrence: RS)
  Receive Date: 20140610
  Receipt Date: 20140610
  Transmission Date: 20141212
  Serious: Yes (Death)
  Sender: FDA-Public Use
  Company Number: RS-ACTAVIS-2014-11751

PATIENT
  Age: 71 Year
  Sex: Female
  Weight: 80 kg

DRUGS (8)
  1. AMIODARONE [Suspect]
     Indication: ATRIAL FIBRILLATION
     Dosage: 200 MG, DAILY
     Route: 048
  2. AMIODARONE [Suspect]
     Indication: ATRIAL FLUTTER
  3. SPIRONOLACTONE (UNKNOWN) [Suspect]
     Indication: PRODUCT USED FOR UNKNOWN INDICATION
     Dosage: 25 MG, DAILY
     Route: 048
  4. PRILAZID [Suspect]
     Indication: CARDIOMYOPATHY
     Dosage: 5 MG, DAILY
     Route: 048
  5. FUROSEMIDE [Concomitant]
     Indication: CARDIOMYOPATHY
     Dosage: 2 DF, 1/WEEK
     Route: 048
     Dates: start: 2013, end: 20140520
  6. DILATREND [Concomitant]
     Indication: CARDIOMYOPATHY
     Dosage: UNK
     Route: 048
     Dates: start: 2000
  7. DILACOR                            /00017701/ [Concomitant]
     Indication: PRODUCT USED FOR UNKNOWN INDICATION
     Dosage: 0.25 MG, UNK
     Route: 065
  8. LEVOTHYROXINE SODIUM [Concomitant]
     Indication: HYPOTHYROIDISM
     Dosage: UNK
     Route: 048
     Dates: start: 2000

REACTIONS (5)
  - Cardiac arrest [Fatal]
  - Circulatory collapse [Fatal]
  - Bradycardia [Fatal]
  - Hypotension [Fatal]
  - Blood potassium increased [Fatal]
